FAERS Safety Report 11455986 (Version 1)
Quarter: 2015Q3

REPORT INFORMATION
  Report Type: Spontaneous
  Country: BR (occurrence: BR)
  Receive Date: 20150903
  Receipt Date: 20150903
  Transmission Date: 20151125
  Serious: Yes (Hospitalization)
  Sender: FDA-Public Use
  Company Number: BR-ASTRAZENECA-2015SE84869

PATIENT
  Age: 94 Year
  Sex: Female
  Weight: 68 kg

DRUGS (2)
  1. ASPIRINA [Concomitant]
     Active Substance: ASPIRIN
     Indication: ANGIOPATHY
     Route: 048
  2. PULMICORT TURBUHALER [Suspect]
     Active Substance: BUDESONIDE
     Indication: COUGH
     Dosage: 0.5 MG/ML TWO TIMES A DAY
     Route: 055
     Dates: start: 20150826

REACTIONS (2)
  - Pneumonia [Recovering/Resolving]
  - Drug administered in wrong device [Not Recovered/Not Resolved]

NARRATIVE: CASE EVENT DATE: 20150826
